FAERS Safety Report 5284615-7 (Version None)
Quarter: 2007Q1

REPORT INFORMATION
  Report Type: 
  Country: None (occurrence: None)
  Receive Date: 20061229
  Receipt Date: 20051206
  Transmission Date: 20070707
  Serious: Yes (Hospitalization)
  Sender: FDA-Public Use
  Company Number: PHEH2005US12598

PATIENT
  Age: 20 Year
  Sex: Female
  Weight: 110 kg

DRUGS (2)
  1. CLOZARIL [Suspect]
     Indication: SCHIZOPHRENIA
     Dosage: 200MG QAM, 300MG  QHS, ORAL
     Route: 048
     Dates: start: 20040101, end: 20051011
  2. DEPAKOTE [Concomitant]

REACTIONS (1)
  - MYOCARDITIS [None]
